FAERS Safety Report 13207135 (Version 1)
Quarter: 2017Q1

REPORT INFORMATION
  Report Type: Spontaneous
  Country: US (occurrence: US)
  Receive Date: 20170209
  Receipt Date: 20170209
  Transmission Date: 20170428
  Serious: Yes (Life-Threatening, Hospitalization, Other)
  Sender: FDA-Public Use
  Company Number: None

PATIENT
  Age: 64 Year
  Sex: Female

DRUGS (1)
  1. NEXIUM [Suspect]
     Active Substance: ESOMEPRAZOLE MAGNESIUM
     Indication: DYSPEPSIA
     Dosage: ?          QUANTITY:40 TABLET(S);?
     Route: 048
     Dates: start: 20120101, end: 20140331

REACTIONS (3)
  - Prescribed overdose [None]
  - Chronic kidney disease [None]
  - Dialysis [None]

NARRATIVE: CASE EVENT DATE: 20121201
